FAERS Safety Report 6163691-3 (Version None)
Quarter: 2009Q2

REPORT INFORMATION
  Report Type: 
  Country: None (occurrence: None)
  Receive Date: 20090420
  Receipt Date: 20090324
  Transmission Date: 20091009
  Serious: Yes (Hospitalization, Other)
  Sender: FDA-Public Use
  Company Number: SPV1-2008-02678

PATIENT
  Age: 79 Year
  Sex: Male
  Weight: 100.2 kg

DRUGS (7)
  1. LIALDA [Suspect]
     Indication: COLITIS ULCERATIVE
     Dosage: 4.8 G, 1X/DAY:QD, ORAL
     Route: 048
     Dates: start: 20080724, end: 20080804
  2. UROCIT-K [Concomitant]
  3. PLAQUENIL [Concomitant]
  4. PREDNISONE [Concomitant]
  5. COLAZAL [Concomitant]
  6. PROAMATINE [Concomitant]
  7. TYLENOL ARTHRITIS (PARACETAMOL) [Concomitant]

REACTIONS (1)
  - PANCREATITIS [None]
